FAERS Safety Report 5903863-3 (Version None)
Quarter: 2008Q3

REPORT INFORMATION
  Report Type: 
  Country: None (occurrence: None)
  Receive Date: 20080930
  Receipt Date: 20080916
  Transmission Date: 20090109
  Serious: Yes (Hospitalization, Other)
  Sender: FDA-Public Use
  Company Number: US-ELI_LILLY_AND_COMPANY-US200809003756

PATIENT
  Sex: Female

DRUGS (8)
  1. FORTEO [Suspect]
     Dates: start: 20070101
  2. MORPHINE SULFATE INJ [Concomitant]
     Dosage: 30 MG, 3/D
  3. OXYCODONE HCL [Concomitant]
     Dosage: 30 MG, EVERY 4 HRS
  4. CLONOPIN [Concomitant]
     Dosage: 1 MG, 3/D
  5. AMBIEN [Concomitant]
     Dosage: 10 MG, EACH EVENING
  6. NEXIUM [Concomitant]
     Dosage: 40 MG, DAILY (1/D)
  7. ERGOCALCIFEROL [Concomitant]
     Dosage: UNK, UNK
     Dates: end: 20080701
  8. ERGOCALCIFEROL [Concomitant]
     Dosage: 50000 U, WEEKLY (1/W)
     Dates: start: 20080701

REACTIONS (9)
  - AMNESIA [None]
  - EYE PAIN [None]
  - HEADACHE [None]
  - INTRACRANIAL ANEURYSM [None]
  - MUSCULOSKELETAL DISCOMFORT [None]
  - PANCREATIC DISORDER [None]
  - PNEUMONIA [None]
  - VISUAL ACUITY REDUCED [None]
  - VITAMIN D ABNORMAL [None]
